FAERS Safety Report 16711091 (Version 1)
Quarter: 2019Q3

REPORT INFORMATION
  Report Type: Report from Study
  Country: US (occurrence: US)
  Receive Date: 20190816
  Receipt Date: 20190816
  Transmission Date: 20191004
  Serious: Yes (Life-Threatening)
  Sender: FDA-Public Use
  Company Number: US-OTSUKA-2019_020162

PATIENT
  Age: 48 Year

DRUGS (1)
  1. TOLVAPTAN [Suspect]
     Active Substance: TOLVAPTAN
     Indication: PRODUCT USED FOR UNKNOWN INDICATION
     Dosage: UNK
     Route: 065
     Dates: start: 20181009

REACTIONS (2)
  - Laboratory test abnormal [Unknown]
  - Liver injury [Unknown]

NARRATIVE: CASE EVENT DATE: 20190412
